FAERS Safety Report 16442345 (Version 1)
Quarter: 2019Q2

REPORT INFORMATION
  Report Type: Report from Study
  Country: None (occurrence: US)
  Receive Date: 20190617
  Receipt Date: 20190617
  Transmission Date: 20190711
  Serious: No
  Sender: FDA-Public Use
  Company Number: US-US WORLDMEDS, LLC-USW201904-000700

PATIENT
  Age: 75 Year
  Sex: Male

DRUGS (13)
  1. APOKYN [Suspect]
     Active Substance: APOMORPHINE HYDROCHLORIDE
     Indication: PARKINSON^S DISEASE
     Route: 058
     Dates: start: 2019
  2. ASA [Concomitant]
     Active Substance: ASPIRIN
  3. SINAMET [Concomitant]
  4. PREVERVISION [Concomitant]
  5. XADAGO [Concomitant]
     Active Substance: SAFINAMIDE MESYLATE
  6. PRILOSEC [Concomitant]
     Active Substance: OMEPRAZOLE MAGNESIUM
  7. ZOLOFT [Concomitant]
     Active Substance: SERTRALINE HYDROCHLORIDE
  8. CLONAZEPAM. [Concomitant]
     Active Substance: CLONAZEPAM
  9. ENTACAPONE. [Concomitant]
     Active Substance: ENTACAPONE
  10. VIT B [Concomitant]
     Active Substance: VITAMIN B
  11. GABAPENTIN. [Concomitant]
     Active Substance: GABAPENTIN
  12. VIT D [Concomitant]
     Active Substance: VITAMIN D NOS
  13. METOPROLOL. [Concomitant]
     Active Substance: METOPROLOL

REACTIONS (2)
  - Swelling [Recovered/Resolved]
  - Injection site bruising [Recovered/Resolved]

NARRATIVE: CASE EVENT DATE: 20190403
